FAERS Safety Report 17899224 (Version 1)
Quarter: 2020Q2

REPORT INFORMATION
  Report Type: Spontaneous
  Country: GB (occurrence: GB)
  Receive Date: 20200616
  Receipt Date: 20200616
  Transmission Date: 20200714
  Serious: Yes (Other)
  Sender: FDA-Public Use
  Company Number: GB-TEVA-2020-GB-1247859

PATIENT
  Age: 84 Year
  Sex: Male

DRUGS (6)
  1. CANDESARTAN. [Concomitant]
     Active Substance: CANDESARTAN
  2. LERCANIDIPINE [Concomitant]
     Active Substance: LERCANIDIPINE
  3. BENDROFLUMETHIAZIDE [Concomitant]
     Active Substance: BENDROFLUMETHIAZIDE
  4. PREDNISOLONE. [Concomitant]
     Active Substance: PREDNISOLONE
  5. SOLIFENACIN [Suspect]
     Active Substance: SOLIFENACIN
     Indication: BLADDER IRRITATION
     Dosage: 5 MG
     Route: 048
     Dates: start: 20200509, end: 20200516
  6. ATENOLOL. [Concomitant]
     Active Substance: ATENOLOL

REACTIONS (4)
  - Jaundice [Unknown]
  - Liver function test abnormal [Unknown]
  - Lethargy [Recovering/Resolving]
  - Hepatitis cholestatic [Recovering/Resolving]

NARRATIVE: CASE EVENT DATE: 20200516
